FAERS Safety Report 17346231 (Version 1)
Quarter: 2020Q1

REPORT INFORMATION
  Report Type: Spontaneous
  Country: AT (occurrence: AT)
  Receive Date: 20200129
  Receipt Date: 20200129
  Transmission Date: 20200409
  Serious: Yes (Other)
  Sender: FDA-Public Use
  Company Number: AT-DSJP-DSE-2020-102834

PATIENT

DRUGS (1)
  1. LIXIANA [Suspect]
     Active Substance: EDOXABAN TOSYLATE
     Indication: ATRIAL FIBRILLATION

REACTIONS (8)
  - Epilepsy [Unknown]
  - General physical health deterioration [Unknown]
  - Dizziness [Unknown]
  - Dyspnoea [Unknown]
  - Ataxia [Unknown]
  - Incorrect dose administered [Recovered/Resolved]
  - Quadrantanopia [Unknown]
  - Acute stress disorder [Unknown]

NARRATIVE: CASE EVENT DATE: 20191011
